FAERS Safety Report 25189041 (Version 1)
Quarter: 2025Q2

REPORT INFORMATION
  Report Type: Spontaneous
  Country: DE (occurrence: DE)
  Receive Date: 20250411
  Receipt Date: 20250411
  Transmission Date: 20250717
  Serious: Yes (Hospitalization, Congenital Anomaly, Other)
  Sender: MERCK SHARP AND DOHME
  Company Number: DE-009507513-2271821

PATIENT
  Age: 70 Year
  Sex: Male

DRUGS (1)
  1. KEYTRUDA [Suspect]
     Active Substance: PEMBROLIZUMAB
     Indication: Metastases to central nervous system
     Route: 065

REACTIONS (5)
  - Eyelid ptosis [Unknown]
  - Muscular dystrophy [Unknown]
  - Immune-mediated myositis [Unknown]
  - Myocarditis [Unknown]
  - Cardiotoxicity [Unknown]

NARRATIVE: CASE EVENT DATE: 20250101
